FAERS Safety Report 8247652-6 (Version None)
Quarter: 2012Q1

REPORT INFORMATION
  Report Type: 
  Country: None (occurrence: None)
  Receive Date: 20120330
  Receipt Date: 20120326
  Transmission Date: 20120608
  Serious: Yes (Death)
  Sender: FDA-Public Use
  Company Number: US-CELGENEUS-163-21880-12033226

PATIENT
  Sex: Male
  Weight: 95.34 kg

DRUGS (7)
  1. DOXAZOSIN MESYLATE [Concomitant]
     Dosage: 4 MILLIGRAM
     Route: 065
  2. REVLIMID [Suspect]
     Dosage: 10 MILLIGRAM
     Route: 048
     Dates: start: 20120101, end: 20120106
  3. VITAMIN B6 [Concomitant]
     Dosage: 50 MILLIGRAM
     Route: 065
  4. REVLIMID [Suspect]
     Indication: MYELODYSPLASTIC SYNDROME
     Dosage: 5 MILLIGRAM
     Route: 048
     Dates: start: 20111110
  5. ARANESP [Concomitant]
     Dosage: 500 MICROGRAM
     Route: 065
  6. AMLODIPINE [Concomitant]
     Dosage: 2.5 MILLIGRAM
     Route: 065
  7. EXJADE [Concomitant]
     Dosage: 500 MILLIGRAM
     Route: 065

REACTIONS (1)
  - DEATH [None]
